FAERS Safety Report 24466961 (Version 1)
Quarter: 2024Q4

REPORT INFORMATION
  Report Type: Spontaneous
  Country: US (occurrence: US)
  Receive Date: 20241018
  Receipt Date: 20241018
  Transmission Date: 20250114
  Serious: No
  Sender: ROCHE
  Company Number: US-ROCHE-3550903

PATIENT
  Age: 22 Year
  Sex: Female

DRUGS (6)
  1. XOLAIR [Suspect]
     Active Substance: OMALIZUMAB
     Indication: Chronic spontaneous urticaria
     Route: 058
     Dates: start: 202212
  2. XOLAIR [Suspect]
     Active Substance: OMALIZUMAB
     Indication: Blood immunoglobulin E increased
  3. EPIPEN [Concomitant]
     Active Substance: EPINEPHRINE
     Indication: Chronic spontaneous urticaria
     Dosage: AS REQUIRED
     Route: 058
  4. BENADRYL [Concomitant]
     Active Substance: DIPHENHYDRAMINE HYDROCHLORIDE
     Indication: Chronic spontaneous urticaria
     Dosage: FREQUENCY TEXT:AS NEEDED
     Route: 065
  5. ALLEGRA [Concomitant]
     Active Substance: FEXOFENADINE HYDROCHLORIDE
     Indication: Hypersensitivity
     Dosage: FREQUENCY TEXT:EVERY MORNING
     Route: 065
  6. PEPCID [Concomitant]
     Active Substance: FAMOTIDINE
     Indication: Product used for unknown indication
     Dosage: FREQUENCY TEXT:AS NEEDED
     Route: 065

REACTIONS (1)
  - Throat irritation [Not Recovered/Not Resolved]

NARRATIVE: CASE EVENT DATE: 20240420
